FAERS Safety Report 6940162-5 (Version None)
Quarter: 2010Q3

REPORT INFORMATION
  Report Type: 
  Country: None (occurrence: None)
  Receive Date: 20100825
  Receipt Date: 20100316
  Transmission Date: 20110219
  Serious: No
  Sender: FDA-Public Use
  Company Number: A0842689A

PATIENT
  Age: 60 Year
  Sex: Male
  Weight: 102 kg

DRUGS (3)
  1. BEXXAR [Suspect]
     Indication: NON-HODGKIN'S LYMPHOMA
     Route: 065
  2. POTASSIUM IODIDE [Suspect]
     Indication: THYROID DISORDER
     Route: 048
  3. ZEVALIN [Concomitant]
     Dates: start: 20100218

REACTIONS (5)
  - ABDOMINAL DISCOMFORT [None]
  - GASTRIC DISORDER [None]
  - GASTRITIS [None]
  - IODINE UPTAKE INCREASED [None]
  - WHITE BLOOD CELL COUNT DECREASED [None]
